FAERS Safety Report 5282844-X (Version None)
Quarter: 2007Q1

REPORT INFORMATION
  Report Type: 
  Country: None (occurrence: None)
  Receive Date: 20070326
  Receipt Date: 20070319
  Transmission Date: 20070707
  Serious: Yes (Hospitalization)
  Sender: FDA-Public Use
  Company Number: URSO-2007-022

PATIENT
  Age: 26 Year
  Sex: Female

DRUGS (5)
  1. URSO 250 [Suspect]
     Indication: HEPATIC ENZYME INCREASED
     Dosage: 3G PO
     Route: 048
     Dates: start: 20070220, end: 20070312
  2. LANSOPRAZOLE [Suspect]
     Indication: REFLUX OESOPHAGITIS
     Dosage: 15MG PO
     Route: 048
  3. CLONAZEPAM [Suspect]
     Indication: CONVULSION PROPHYLAXIS
     Dosage: 1MG PO
     Route: 048
  4. LASIX [Concomitant]
  5. ALDACTONE [Concomitant]

REACTIONS (2)
  - DERMATITIS EXFOLIATIVE [None]
  - THROMBOCYTOPENIA [None]
